FAERS Safety Report 17281436 (Version 1)
Quarter: 2020Q1

REPORT INFORMATION
  Report Type: Spontaneous
  Country: GB (occurrence: GB)
  Receive Date: 20200117
  Receipt Date: 20200117
  Transmission Date: 20200409
  Serious: Yes (Other)
  Sender: FDA-Public Use
  Company Number: GB-TEVA-2020-GB-1168100

PATIENT
  Age: 86 Year
  Sex: Female
  Weight: 72 kg

DRUGS (12)
  1. PREDNISOLONE. [Concomitant]
     Active Substance: PREDNISOLONE
     Dosage: USE AS DIRECTED.
     Dates: start: 20191105
  2. LEFLUNOMIDE. [Suspect]
     Active Substance: LEFLUNOMIDE
     Dosage: 10MG
     Dates: start: 20191031, end: 20191122
  3. LANSOPRAZOLE. [Concomitant]
     Active Substance: LANSOPRAZOLE
     Dosage: 1 DOSAGE FORM PER DAY
     Dates: start: 20190711
  4. CLARITHROMYCIN. [Concomitant]
     Active Substance: CLARITHROMYCIN
     Dosage: 1 DOSAGE FORM EVERY 12 HOURS
     Dates: start: 20191014, end: 20191021
  5. PARACETAMOL [Concomitant]
     Active Substance: ACETAMINOPHEN
     Dosage: TAKE ONE OR TWO UP TO FOUR TIMES A DAY.
     Dates: start: 20190711
  6. RAMIPRIL. [Concomitant]
     Active Substance: RAMIPRIL
     Dosage: 1 DOSAGE FORM PER DAY
     Dates: start: 20190711
  7. LAXIDO [Concomitant]
     Active Substance: POLYETHYLENE GLYCOL 3350\POTASSIUM CHLORIDE\SODIUM BICARBONATE\SODIUM CHLORIDE
     Dosage: USE AS DIRECTED.
     Dates: start: 20190711
  8. CACIT VITAMIN D3 [Concomitant]
     Active Substance: CALCIUM CARBONATE\CHOLECALCIFEROL
     Dosage: 1 DOSAGE FORM PER DAY
     Dates: start: 20190711
  9. ALENDRONIC ACID [Concomitant]
     Active Substance: ALENDRONIC ACID
     Dosage: 1 DOSAGE FORM PER WEEK
     Dates: start: 20190711
  10. BENDROFLUMETHIAZIDE [Concomitant]
     Active Substance: BENDROFLUMETHIAZIDE
     Dosage: 1 DOSAGE FORMS DAILY; MORNING.
     Dates: start: 20190711
  11. FENBID [Concomitant]
     Active Substance: IBUPROFEN
     Dosage: APPLY. (3 DOSAGE FORMS PER DAY)
     Dates: start: 20190723
  12. LEVOTHYROXINE. [Concomitant]
     Active Substance: LEVOTHYROXINE
     Dosage: 1 DOSAGE FORMS DAILY; MORNING.
     Dates: start: 20190711

REACTIONS (2)
  - Peripheral swelling [Recovered/Resolved]
  - Diarrhoea [Recovered/Resolved]

NARRATIVE: CASE EVENT DATE: 20191105
